FAERS Safety Report 21400734 (Version 2)
Quarter: 2023Q2

REPORT INFORMATION
  Report Type: Spontaneous
  Country: IT (occurrence: IT)
  Receive Date: 20221003
  Receipt Date: 20230504
  Transmission Date: 20230721
  Serious: Yes (Hospitalization, Other)
  Sender: FDA-Public Use
  Company Number: IT-MLMSERVICE-20220915-3797340-1

PATIENT
  Age: 5 Year
  Sex: Male

DRUGS (9)
  1. LEVETIRACETAM [Suspect]
     Active Substance: LEVETIRACETAM
     Indication: Immune-mediated encephalitis
     Dosage: 50 MILLIGRAM(UP TO)
     Route: 065
  2. LEVETIRACETAM [Suspect]
     Active Substance: LEVETIRACETAM
     Indication: Febrile infection-related epilepsy syndrome
  3. METHYLPREDNISOLONE [Suspect]
     Active Substance: METHYLPREDNISOLONE
     Indication: Immune-mediated encephalitis
     Dosage: 30 MILLIGRAM/KILOGRAM, ONCE A DAY(HIGH-DOSE)
     Route: 042
  4. METHYLPREDNISOLONE [Suspect]
     Active Substance: METHYLPREDNISOLONE
     Indication: Febrile infection-related epilepsy syndrome
  5. VALPROIC ACID [Suspect]
     Active Substance: VALPROIC ACID
     Indication: Febrile infection-related epilepsy syndrome
     Dosage: 30 MILLIGRAM/KILOGRAM(UP TO 30 MG/KG)
     Route: 065
  6. VALPROIC ACID [Suspect]
     Active Substance: VALPROIC ACID
     Indication: Immune-mediated encephalitis
  7. PHENOBARBITAL [Concomitant]
     Active Substance: PHENOBARBITAL
     Indication: Febrile infection-related epilepsy syndrome
     Dosage: UNK
     Route: 065
  8. PHENYTOIN [Concomitant]
     Active Substance: PHENYTOIN
     Indication: Febrile infection-related epilepsy syndrome
     Dosage: UNK
     Route: 065
  9. TOPIRAMATE [Concomitant]
     Active Substance: TOPIRAMATE
     Indication: Product used for unknown indication
     Dosage: 10 MILLIGRAM/KILOGRAM
     Route: 065

REACTIONS (1)
  - Cerebral atrophy [Recovered/Resolved]
